FAERS Safety Report 9390833 (Version 1)
Quarter: 2013Q3

REPORT INFORMATION
  Report Type: Spontaneous
  Country: US (occurrence: US)
  Receive Date: 20130709
  Receipt Date: 20130709
  Transmission Date: 20140515
  Serious: Yes (Other)
  Sender: FDA-Public Use
  Company Number: US-INCYTE CORPORATION-2013IN001435

PATIENT
  Age: 53 Year
  Sex: Female

DRUGS (5)
  1. JAKAFI [Suspect]
     Indication: MYELOFIBROSIS
     Dosage: 15 MG, BID
     Route: 048
  2. PRILOSEC [Concomitant]
  3. PROBIOTIC CAPSULE [Concomitant]
  4. FIBER CHOICE [Concomitant]
  5. FOLIC ACID [Concomitant]

REACTIONS (1)
  - Thrombosis [Unknown]
